FAERS Safety Report 9470224 (Version 2)
Quarter: 2013Q3

REPORT INFORMATION
  Report Type: Spontaneous
  Country: JP (occurrence: None)
  Receive Date: 20130815
  Receipt Date: 20130828
  Transmission Date: 20140515
  Serious: Yes (Hospitalization)
  Sender: FDA-Public Use
  Company Number: TCI2013A04886

PATIENT
  Age: 57 Year
  Sex: Male

DRUGS (9)
  1. NESINA [Suspect]
     Indication: TYPE 2 DIABETES MELLITUS
     Dosage: 25 MG (25 MG, 1 IN 1 D)   PER ORAL
     Route: 048
     Dates: start: 20130630, end: 20130810
  2. BAYASPIRIN (ACETYLSALICYLIC ACID) (ACETYLSALICYLIC ACID) [Concomitant]
  3. OMPERAL (OMEPRAZOLE) [Concomitant]
  4. MELVALOTIN (PRAVASTATIN SODIUM) [Concomitant]
  5. EXFORGE (AMLODIPINE BESILATE, VALSARTAN) [Concomitant]
  6. NITOROL R (ISOSORBIDE DINITRAE) [Concomitant]
  7. METUGLUCO (METFORMIN HYDROCHLORIDE) [Concomitant]
  8. MAGMITT (MAGNESIUM OXIDE) [Concomitant]
  9. PANTOSIN (PANTETHINE) [Concomitant]

REACTIONS (5)
  - Ileus [None]
  - Nausea [None]
  - Vomiting [None]
  - Abdominal pain upper [None]
  - Diarrhoea [None]
